FAERS Safety Report 7267381-5 (Version None)
Quarter: 2011Q1

REPORT INFORMATION
  Report Type: 
  Country: None (occurrence: None)
  Receive Date: 20110201
  Receipt Date: 20100820
  Transmission Date: 20110831
  Serious: No
  Sender: FDA-Public Use
  Company Number: A0876991A

PATIENT
  Age: 65 Year
  Sex: Female

DRUGS (7)
  1. STOOL SOFTENER [Concomitant]
  2. ARIXTRA [Suspect]
     Indication: THROMBOSIS PROPHYLAXIS
     Route: 058
     Dates: start: 20100728
  3. TRAMADOL HCL [Concomitant]
  4. OXYCODONE HCL [Concomitant]
  5. ASCORBIC ACID [Concomitant]
  6. VITAMIN D [Concomitant]
  7. MORPHINE [Concomitant]

REACTIONS (1)
  - CONTUSION [None]
